FAERS Safety Report 10704703 (Version 5)
Quarter: 2016Q2

REPORT INFORMATION
  Report Type: Spontaneous
  Country: US (occurrence: US)
  Receive Date: 20150112
  Receipt Date: 20160621
  Transmission Date: 20160815
  Serious: Yes (Hospitalization, Other)
  Sender: FDA-Public Use
  Company Number: US-MERCK-1501USA002599

PATIENT
  Sex: Male
  Weight: 99.77 kg

DRUGS (3)
  1. FINASTERIDE. [Suspect]
     Active Substance: FINASTERIDE
     Indication: ALOPECIA
     Dosage: 1 MG, UNK
     Route: 048
     Dates: start: 2007
  2. FINASTERIDE. [Suspect]
     Active Substance: FINASTERIDE
     Indication: PROSTATOMEGALY
  3. PROPECIA [Suspect]
     Active Substance: FINASTERIDE
     Indication: ALOPECIA
     Dosage: 1 MG, UNK
     Route: 048
     Dates: start: 20050523, end: 20070614

REACTIONS (27)
  - Erectile dysfunction [Not Recovered/Not Resolved]
  - Bronchitis [Recovered/Resolved]
  - Atelectasis [Unknown]
  - Urinary tract disorder [Not Recovered/Not Resolved]
  - Soft tissue mass [Unknown]
  - Subdiaphragmatic abscess [Unknown]
  - Lung consolidation [Unknown]
  - Prostate cancer [Not Recovered/Not Resolved]
  - Chronic sinusitis [Unknown]
  - Hypothyroidism [Unknown]
  - Haematuria [Not Recovered/Not Resolved]
  - Nephrolithiasis [Unknown]
  - Sexual dysfunction [Not Recovered/Not Resolved]
  - Pancreatic pseudocyst [Unknown]
  - Pleural effusion [Unknown]
  - Micturition urgency [Recovered/Resolved]
  - Off label use [Unknown]
  - Microcytic anaemia [Unknown]
  - Urinary tract infection [Not Recovered/Not Resolved]
  - Oesophageal carcinoma [Not Recovered/Not Resolved]
  - Haemoptysis [Recovered/Resolved]
  - Pollakiuria [Recovered/Resolved]
  - Hypoglycaemia [Recovering/Resolving]
  - Anaemia of chronic disease [Unknown]
  - Cystitis radiation [Not Recovered/Not Resolved]
  - Hypertriglyceridaemia [Unknown]
  - Pleural effusion [Unknown]

NARRATIVE: CASE EVENT DATE: 2005
